FAERS Safety Report 15436342 (Version 1)
Quarter: 2020Q3

REPORT INFORMATION
  Report Type: Spontaneous
  Country: CA (occurrence: CA)
  Receive Date: 20180927
  Receipt Date: 20180927
  Transmission Date: 20201104
  Serious: Yes (Death, Hospitalization)
  Sender: FDA-Public Use
  Company Number: CA-CELGENEUS-CAN-20180908817

PATIENT
  Age: 71 Year
  Sex: Male

DRUGS (19)
  1. MEDI4736 (DURVALUMAB) [Suspect]
     Active Substance: DURVALUMAB
     Indication: PANCREATIC CARCINOMA
     Dosage: 1500 MILLIGRAM
     Route: 041
     Dates: start: 20170511, end: 20170511
  2. MORPHINE [Concomitant]
     Active Substance: MORPHINE
     Indication: GASTROINTESTINAL PAIN
     Route: 065
     Dates: start: 201704
  3. SENNA ALEXANDRINA [Concomitant]
     Active Substance: SENNA LEAF
     Indication: CONSTIPATION PROPHYLAXIS
     Route: 065
     Dates: start: 20170502
  4. OZAGREL HYDROCHLORIDE [Concomitant]
     Active Substance: OZAGREL HYDROCHLORIDE
     Indication: SUPPLEMENTATION THERAPY
     Route: 065
     Dates: start: 20170425
  5. OLANZAPINE. [Concomitant]
     Active Substance: OLANZAPINE
     Indication: NAUSEA
     Route: 065
     Dates: start: 20170525
  6. ONDANSETRON [Concomitant]
     Active Substance: ONDANSETRON
     Indication: NAUSEA
     Route: 065
     Dates: start: 20170512, end: 20170525
  7. PANCREATIN [Concomitant]
     Active Substance: PANCRELIPASE
     Indication: ENZYME ABNORMALITY
     Route: 065
     Dates: start: 201704
  8. TREMELIMUMAB. [Suspect]
     Active Substance: TREMELIMUMAB
     Indication: PANCREATIC CARCINOMA
     Dosage: 75 MILLIGRAM
     Route: 041
     Dates: start: 20170511, end: 20170511
  9. MORPHINE [Concomitant]
     Active Substance: MORPHINE
     Indication: ABDOMINAL PAIN
     Route: 065
     Dates: start: 20170502
  10. ABRAXANE [Suspect]
     Active Substance: PACLITAXEL
     Indication: PANCREATIC CARCINOMA
     Dosage: 200 MILLIGRAM
     Route: 041
     Dates: start: 20170511
  11. ROSUVASTATIN. [Concomitant]
     Active Substance: ROSUVASTATIN
     Indication: HYPERLIPIDAEMIA
     Route: 065
     Dates: start: 2016
  12. VILDAGLIPTIN [Concomitant]
     Active Substance: VILDAGLIPTIN
     Indication: DIABETES MELLITUS
     Route: 065
     Dates: start: 2016
  13. GEMCITABINE. [Suspect]
     Active Substance: GEMCITABINE
     Indication: PANCREATIC CARCINOMA
     Dosage: 1540 MILLIGRAM
     Route: 041
     Dates: start: 20170511
  14. METHADONE [Concomitant]
     Active Substance: METHADONE HYDROCHLORIDE
     Indication: GASTROINTESTINAL PAIN
     Route: 065
     Dates: start: 20170502
  15. ROSUVASTATIN. [Concomitant]
     Active Substance: ROSUVASTATIN
     Indication: LIPIDS INCREASED
  16. ENSURE [Concomitant]
     Active Substance: AMINO ACIDS\DEXTROSE\ELECTROLYTES NOS\SOYBEAN OIL\VITAMINS
     Indication: SUPPLEMENTATION THERAPY
     Route: 065
     Dates: start: 201704
  17. METHADONE [Concomitant]
     Active Substance: METHADONE HYDROCHLORIDE
     Indication: ABDOMINAL PAIN
  18. METFORMIN [Concomitant]
     Active Substance: METFORMIN HYDROCHLORIDE
     Indication: DIABETES MELLITUS
     Route: 065
     Dates: start: 2016
  19. GALVUS MET [Concomitant]
     Active Substance: METFORMIN HYDROCHLORIDE\VILDAGLIPTIN
     Indication: DIABETES MELLITUS
     Route: 065
     Dates: start: 2016

REACTIONS (3)
  - Acute kidney injury [Fatal]
  - Vomiting [Not Recovered/Not Resolved]
  - Dehydration [Not Recovered/Not Resolved]

NARRATIVE: CASE EVENT DATE: 20170530
